FAERS Safety Report 7672597-X (Version None)
Quarter: 2011Q3

REPORT INFORMATION
  Report Type: 
  Country: None (occurrence: None)
  Receive Date: 20110809
  Receipt Date: 20110217
  Transmission Date: 20111222
  Serious: Yes (Other)
  Sender: FDA-Public Use
  Company Number: CA-JNJFOC-20100901586

PATIENT
  Sex: Male
  Weight: 90 kg

DRUGS (11)
  1. OXYCET [Concomitant]
  2. ASPIRIN [Concomitant]
  3. SPIRIVA [Concomitant]
  4. REMICADE [Suspect]
     Indication: ANKYLOSING SPONDYLITIS
     Route: 042
     Dates: start: 20080701, end: 20101001
  5. CODEINE SULFATE [Concomitant]
  6. CALCIUM CARBONATE [Concomitant]
  7. CELEBREX [Concomitant]
  8. SENOKOT [Concomitant]
  9. APO-SALVENT [Concomitant]
  10. VITAMIN D [Concomitant]
  11. APO-CYCLOBENZAPRINE [Concomitant]

REACTIONS (4)
  - BLOOD PRESSURE INCREASED [None]
  - MYOCARDIAL INFARCTION [None]
  - HEART RATE INCREASED [None]
  - DYSPNOEA [None]
